FAERS Safety Report 4938269-7 (Version None)
Quarter: 2006Q1

REPORT INFORMATION
  Report Type: 
  Country: None (occurrence: None)
  Receive Date: 20060309
  Receipt Date: 20050624
  Transmission Date: 20060701
  Serious: No
  Sender: FDA-Public Use
  Company Number: GBWYE776027JUN05

PATIENT
  Sex: Male

DRUGS (2)
  1. ENBREL [Suspect]
     Indication: JUVENILE ARTHRITIS
     Dosage: 8MG FREQUENCY UNKNOWN
     Route: 058
     Dates: start: 20040901
  2. METHOTREXATE [Concomitant]
     Dosage: 12MG FREQUENCY UNKNOWN
     Dates: start: 20030801

REACTIONS (2)
  - HAEMATURIA [None]
  - UVEITIS [None]
